FAERS Safety Report 6614931-5 (Version None)
Quarter: 2010Q1

REPORT INFORMATION
  Report Type: 
  Country: None (occurrence: None)
  Receive Date: 20100305
  Receipt Date: 20100224
  Transmission Date: 20100710
  Serious: Yes (Other)
  Sender: FDA-Public Use
  Company Number: CA-WYE-G05648810

PATIENT
  Sex: Female

DRUGS (1)
  1. EFFEXOR XR [Suspect]
     Dosage: UNKNOWN
     Route: 048
     Dates: start: 20090901, end: 20100101

REACTIONS (3)
  - CARDIAC FLUTTER [None]
  - DRUG WITHDRAWAL SYNDROME [None]
  - PRESYNCOPE [None]
